FAERS Safety Report 6662046-2 (Version None)
Quarter: 2010Q1

REPORT INFORMATION
  Report Type: 
  Country: None (occurrence: None)
  Receive Date: 20100331
  Receipt Date: 20100128
  Transmission Date: 20100710
  Serious: Yes (Other)
  Sender: FDA-Public Use
  Company Number: US-BRISTOL-MYERS SQUIBB COMPANY-14953665

PATIENT
  Age: 4 Decade
  Sex: Female

DRUGS (4)
  1. ERBITUX [Suspect]
     Indication: COLORECTAL CANCER
     Dosage: LOADING DOSE UNK RECHALLEGED AT LOWER DOSE OF 175 MG/M2
  2. IRINOTECAN HCL [Concomitant]
     Indication: CHEMOTHERAPY
  3. STEROIDS [Concomitant]
     Indication: PREMEDICATION
  4. BENADRYL [Concomitant]
     Indication: PREMEDICATION

REACTIONS (4)
  - BLOOD PRESSURE DECREASED [None]
  - NAUSEA [None]
  - RASH [None]
  - SWELLING [None]
